FAERS Safety Report 11724714 (Version 3)
Quarter: 2015Q4

REPORT INFORMATION
  Report Type: Spontaneous
  Country: US (occurrence: US)
  Receive Date: 20151111
  Receipt Date: 20151225
  Transmission Date: 20160304
  Serious: Yes (Other)
  Sender: FDA-Public Use
  Company Number: US-UCBSA-2015007784

PATIENT
  Age: 2 Year
  Sex: Female

DRUGS (9)
  1. VIMPAT [Suspect]
     Active Substance: LACOSAMIDE
     Dosage: 9 ML, UNK
  2. VIMPAT [Suspect]
     Active Substance: LACOSAMIDE
     Dosage: 6 ML, UNK
  3. TOPAMAX [Concomitant]
     Active Substance: TOPIRAMATE
     Indication: PRODUCT USED FOR UNKNOWN INDICATION
     Dosage: UNK
  4. VIMPAT [Suspect]
     Active Substance: LACOSAMIDE
     Indication: SEIZURE
     Dosage: 6 ML, 2X/DAY (BID)
  5. KEPPRA [Suspect]
     Active Substance: LEVETIRACETAM
     Indication: SEIZURE
     Dosage: 3 ML, 2X/DAY (BID)
  6. CLONAZEPAM. [Concomitant]
     Active Substance: CLONAZEPAM
     Indication: SEIZURE
     Dosage: 1 MG, ONCE DAILY (QD)
  7. VIMPAT [Suspect]
     Active Substance: LACOSAMIDE
     Dosage: 6 ML, UNK
  8. VIMPAT [Suspect]
     Active Substance: LACOSAMIDE
     Dosage: 7 ML, UNK
  9. TOPAMAX [Concomitant]
     Active Substance: TOPIRAMATE
     Dosage: 1 DF, 2X/DAY (BID)

REACTIONS (5)
  - Seizure [Unknown]
  - Drug ineffective [Unknown]
  - Unevaluable event [Unknown]
  - Sleep disorder [Recovering/Resolving]
  - Abnormal behaviour [Unknown]
